FAERS Safety Report 5360142-3 (Version None)
Quarter: 2007Q2

REPORT INFORMATION
  Report Type: 
  Country: None (occurrence: None)
  Receive Date: 20070618
  Receipt Date: 20070607
  Transmission Date: 20071010
  Serious: Yes (Hospitalization)
  Sender: FDA-Public Use
  Company Number: PHBS2007RU09376

PATIENT
  Sex: Female

DRUGS (1)
  1. STALEVO 100 [Suspect]
     Route: 065

REACTIONS (2)
  - ANURIA [None]
  - CHROMATURIA [None]
